FAERS Safety Report 6133421-X (Version None)
Quarter: 2009Q1

REPORT INFORMATION
  Report Type: 
  Country: None (occurrence: None)
  Receive Date: 20090326
  Receipt Date: 20090311
  Transmission Date: 20090719
  Serious: Yes (Other)
  Sender: FDA-Public Use
  Company Number: JP-PFIZER INC-2009184740

PATIENT

DRUGS (2)
  1. CABERGOLINE [Suspect]
     Indication: PITUITARY TUMOUR BENIGN
     Route: 048
  2. BROMOCRIPTINE MESYLATE [Concomitant]
     Route: 048

REACTIONS (5)
  - BLOOD PROLACTIN INCREASED [None]
  - HYPERLIPIDAEMIA [None]
  - HYPERTENSION [None]
  - IIIRD NERVE PARALYSIS [None]
  - PITUITARY TUMOUR BENIGN [None]
